FAERS Safety Report 25216047 (Version 1)
Quarter: 2025Q2

REPORT INFORMATION
  Report Type: Spontaneous
  Country: US (occurrence: US)
  Receive Date: 20250418
  Receipt Date: 20250418
  Transmission Date: 20250717
  Serious: Yes (Hospitalization)
  Sender: ROCHE
  Company Number: US-ROCHE-10000255019

PATIENT
  Sex: Female

DRUGS (1)
  1. XOLAIR [Suspect]
     Active Substance: OMALIZUMAB
     Indication: Urticaria
     Dosage: STRENGTH AND DOSE:150 MG/ML
     Route: 058
     Dates: start: 202504

REACTIONS (4)
  - Hypertension [Unknown]
  - Blister [Unknown]
  - Swelling [Unknown]
  - Renal disorder [Unknown]
